FAERS Safety Report 5575392-0 (Version None)
Quarter: 2007Q4

REPORT INFORMATION
  Report Type: 
  Country: None (occurrence: None)
  Receive Date: 20071227
  Receipt Date: 20071220
  Transmission Date: 20080405
  Serious: Yes (Hospitalization)
  Sender: FDA-Public Use
  Company Number: JP-BOEHRINGER INGELHEIM PHARMACEUTICALS, INC.-2005-BP-15614YA

PATIENT
  Sex: Male
  Weight: 66 kg

DRUGS (8)
  1. HARNAL [Suspect]
     Indication: BENIGN PROSTATIC HYPERPLASIA
     Route: 048
     Dates: start: 20050724, end: 20050824
  2. BUFFERIN [Suspect]
     Indication: CEREBRAL INFARCTION
     Route: 048
     Dates: start: 20050724, end: 20050824
  3. BUFFERIN [Suspect]
     Route: 048
     Dates: start: 20070905
  4. RENIVEZE [Suspect]
     Indication: HYPERTENSION
     Route: 048
     Dates: start: 20050814, end: 20050824
  5. OZAGREL SODIUM [Suspect]
     Route: 065
     Dates: start: 20050723, end: 20050824
  6. SENNOSIDE [Concomitant]
     Indication: CONSTIPATION
     Dates: start: 20050724, end: 20050824
  7. CETILO (RHUBARB/SENNA) [Concomitant]
     Indication: CONSTIPATION
     Dates: start: 20050724, end: 20050824
  8. INSULIN INJECTION, BIPHASIC [Concomitant]
     Indication: DIABETES MELLITUS
     Route: 058
     Dates: start: 20050725

REACTIONS (2)
  - BILIARY TRACT DISORDER [None]
  - LIVER DISORDER [None]
